FAERS Safety Report 9677665 (Version 3)
Quarter: 2013Q4

REPORT INFORMATION
  Report Type: Spontaneous
  Country: US (occurrence: US)
  Receive Date: 20131108
  Receipt Date: 20131223
  Transmission Date: 20140711
  Serious: Yes (Disabling, Other)
  Sender: FDA-Public Use
  Company Number: US-ASTELLAS-2013US011520

PATIENT
  Age: 46 Year
  Sex: Male

DRUGS (6)
  1. PROGRAF [Suspect]
     Indication: LIVER TRANSPLANT
     Dosage: 3 MG, UID/QD
     Route: 048
     Dates: start: 20020415
  2. LISINOPRIL [Concomitant]
     Indication: PRODUCT USED FOR UNKNOWN INDICATION
     Dosage: 5 MG, UID/QD
     Route: 065
  3. METFORMIN HCL [Concomitant]
     Indication: PRODUCT USED FOR UNKNOWN INDICATION
     Dosage: 500 MG, UID/QD
     Route: 065
  4. MAGNESIUM OXIDE [Concomitant]
     Indication: PRODUCT USED FOR UNKNOWN INDICATION
     Dosage: 400 MG, BID
     Route: 065
  5. MIRTAZAPINE [Concomitant]
     Indication: PRODUCT USED FOR UNKNOWN INDICATION
     Dosage: 45 MG, UID/QD
     Route: 065
  6. FISH OIL [Concomitant]
     Indication: PRODUCT USED FOR UNKNOWN INDICATION
     Dosage: 1000 MG, 5 TABS DAILY
     Route: 065

REACTIONS (13)
  - Drug ineffective [Unknown]
  - Disability [Not Recovered/Not Resolved]
  - Immunodeficiency [Unknown]
  - Bile duct obstruction [Unknown]
  - Stress [Unknown]
  - Fatigue [Unknown]
  - Hypertension [Unknown]
  - Dizziness [Unknown]
  - Diarrhoea [Unknown]
  - Diabetes mellitus [Unknown]
  - Anxiety [Unknown]
  - Respiratory disorder [Unknown]
  - Liver transplant rejection [Unknown]
